FAERS Safety Report 7366004-4 (Version None)
Quarter: 2011Q1

REPORT INFORMATION
  Report Type: 
  Country: None (occurrence: None)
  Receive Date: 20110322
  Receipt Date: 20110308
  Transmission Date: 20110831
  Serious: Yes (Hospitalization)
  Sender: FDA-Public Use
  Company Number: FR-MYLANLABS-2011S1004858

PATIENT
  Age: 48 Year
  Sex: Male
  Weight: 71 kg

DRUGS (4)
  1. FLUOROURACIL [Suspect]
     Indication: COLON CANCER
     Dosage: BOLUS DOSE OF 400 MG/M2 (750 MG)
     Route: 040
  2. OXALIPLATIN [Concomitant]
     Indication: COLON CANCER
     Dosage: 85 MG/M2 (160MG)
     Route: 065
  3. CALCIUM FOLINATE [Concomitant]
     Indication: COLON CANCER
     Dosage: 200 MG/M2 (375MG)
     Route: 065
  4. FLUOROURACIL [Suspect]
     Dosage: 2400 MG/M2 (4510 MG) OVER 46 HOURS
     Route: 041

REACTIONS (2)
  - STRESS CARDIOMYOPATHY [None]
  - STATUS EPILEPTICUS [None]
